FAERS Safety Report 15429668 (Version 1)
Quarter: 2020Q3

REPORT INFORMATION
  Report Type: Report from Study
  Country: US (occurrence: US)
  Receive Date: 20180926
  Receipt Date: 20180926
  Transmission Date: 20201104
  Serious: Yes (Hospitalization)
  Sender: FDA-Public Use
  Company Number: US-ASTRAZENECA-2016SE86085

PATIENT
  Age: 51 Year
  Sex: Male
  Weight: 63 kg

DRUGS (24)
  1. FENTANYL. [Concomitant]
     Active Substance: FENTANYL
     Indication: SQUAMOUS CELL CARCINOMA OF HEAD AND NECK
     Route: 065
     Dates: start: 20160205, end: 20160318
  2. ADVAIR HFA [Concomitant]
     Active Substance: FLUTICASONE PROPIONATE\SALMETEROL XINAFOATE
     Indication: HYPERSENSITIVITY
     Route: 065
  3. TREMELIMUMAB. [Suspect]
     Active Substance: TREMELIMUMAB
     Indication: SQUAMOUS CELL CARCINOMA OF HEAD AND NECK
     Dosage: 63.0MG ONCE/SINGLE ADMINISTRATION
     Route: 042
     Dates: start: 20160229, end: 20160229
  4. TREMELIMUMAB. [Suspect]
     Active Substance: TREMELIMUMAB
     Indication: SQUAMOUS CELL CARCINOMA OF HEAD AND NECK
     Dosage: 63.0MG ONCE/SINGLE ADMINISTRATION
     Route: 042
     Dates: start: 20160328, end: 20160328
  5. MEDI4736 [Suspect]
     Active Substance: DURVALUMAB
     Indication: SQUAMOUS CELL CARCINOMA OF HEAD AND NECK
     Dosage: 630.0MG ONCE/SINGLE ADMINISTRATION
     Route: 042
     Dates: start: 20160721, end: 20160721
  6. MEDI4736 [Suspect]
     Active Substance: DURVALUMAB
     Indication: SQUAMOUS CELL CARCINOMA OF HEAD AND NECK
     Dosage: 1260.0MG ONCE/SINGLE ADMINISTRATION
     Route: 042
     Dates: start: 20160328, end: 20160328
  7. FENTANYL. [Concomitant]
     Active Substance: FENTANYL
     Indication: SQUAMOUS CELL CARCINOMA OF HEAD AND NECK
     Route: 065
     Dates: start: 20160330, end: 20160425
  8. FLUTICASONE. [Concomitant]
     Active Substance: FLUTICASONE
     Indication: SEASONAL ALLERGY
     Route: 065
  9. MEDI4736 [Suspect]
     Active Substance: DURVALUMAB
     Indication: SQUAMOUS CELL CARCINOMA OF HEAD AND NECK
     Dosage: 1260.0MG ONCE/SINGLE ADMINISTRATION
     Route: 042
     Dates: start: 20160229, end: 20160229
  10. TREMELIMUMAB. [Suspect]
     Active Substance: TREMELIMUMAB
     Indication: SQUAMOUS CELL CARCINOMA OF HEAD AND NECK
     Dosage: 63.0MG ONCE/SINGLE ADMINISTRATION
     Route: 042
     Dates: start: 20160523, end: 20160523
  11. LOVENOX [Concomitant]
     Active Substance: ENOXAPARIN SODIUM
     Indication: DEEP VEIN THROMBOSIS
     Route: 065
     Dates: start: 2015
  12. SYNTHROID [Concomitant]
     Active Substance: LEVOTHYROXINE SODIUM
     Route: 065
     Dates: start: 20160425
  13. MEDI4736 [Suspect]
     Active Substance: DURVALUMAB
     Indication: SQUAMOUS CELL CARCINOMA OF HEAD AND NECK
     Dosage: 1260.0MG ONCE/SINGLE ADMINISTRATION
     Route: 042
     Dates: start: 20160425, end: 20160425
  14. TREMELIMUMAB. [Suspect]
     Active Substance: TREMELIMUMAB
     Indication: SQUAMOUS CELL CARCINOMA OF HEAD AND NECK
     Dosage: 63.0MG ONCE/SINGLE ADMINISTRATION
     Route: 042
     Dates: start: 20160425, end: 20160425
  15. OXYCODONE [Concomitant]
     Active Substance: OXYCODONE
     Indication: SQUAMOUS CELL CARCINOMA OF HEAD AND NECK
     Route: 065
     Dates: start: 20160205
  16. FENTANYL. [Concomitant]
     Active Substance: FENTANYL
     Indication: SQUAMOUS CELL CARCINOMA OF HEAD AND NECK
     Route: 065
     Dates: start: 20160318, end: 20160330
  17. FENTANYL. [Concomitant]
     Active Substance: FENTANYL
     Indication: SQUAMOUS CELL CARCINOMA OF HEAD AND NECK
     Route: 065
     Dates: start: 20160425
  18. CHLORHEXIDINE [Concomitant]
     Active Substance: CHLORHEXIDINE
     Indication: PROPHYLAXIS
     Route: 065
  19. MEDI4736 [Suspect]
     Active Substance: DURVALUMAB
     Indication: SQUAMOUS CELL CARCINOMA OF HEAD AND NECK
     Dosage: 1260.0MG ONCE/SINGLE ADMINISTRATION
     Route: 042
     Dates: start: 20160425, end: 20160425
  20. MEDI4736 [Suspect]
     Active Substance: DURVALUMAB
     Indication: SQUAMOUS CELL CARCINOMA OF HEAD AND NECK
     Dosage: 630.0MG ONCE/SINGLE ADMINISTRATION
     Route: 042
     Dates: start: 20160721, end: 20160721
  21. MEDI4736 [Suspect]
     Active Substance: DURVALUMAB
     Indication: SQUAMOUS CELL CARCINOMA OF HEAD AND NECK
     Dosage: 1260.0MG ONCE/SINGLE ADMINISTRATION
     Route: 042
     Dates: start: 20160229, end: 20160229
  22. MEDI4736 [Suspect]
     Active Substance: DURVALUMAB
     Indication: SQUAMOUS CELL CARCINOMA OF HEAD AND NECK
     Dosage: 1260.0MG ONCE/SINGLE ADMINISTRATION
     Route: 042
     Dates: start: 20160328, end: 20160328
  23. MEDI4736 [Suspect]
     Active Substance: DURVALUMAB
     Indication: SQUAMOUS CELL CARCINOMA OF HEAD AND NECK
     Dosage: 1260.0MG ONCE/SINGLE ADMINISTRATION
     Route: 042
     Dates: start: 20160523, end: 20160523
  24. MEDI4736 [Suspect]
     Active Substance: DURVALUMAB
     Indication: SQUAMOUS CELL CARCINOMA OF HEAD AND NECK
     Dosage: 1260.0MG ONCE/SINGLE ADMINISTRATION
     Route: 042
     Dates: start: 20160523, end: 20160523

REACTIONS (1)
  - Mouth haemorrhage [Recovered/Resolved]

NARRATIVE: CASE EVENT DATE: 20160430
